FAERS Safety Report 8237108-9 (Version None)
Quarter: 2012Q1

REPORT INFORMATION
  Report Type: 
  Country: None (occurrence: None)
  Receive Date: 20120327
  Receipt Date: 20120322
  Transmission Date: 20120608
  Serious: No
  Sender: FDA-Public Use
  Company Number: US-B.I. PHARMACEUTICALS,INC./RIDGEFIELD-2012-BP-05538BP

PATIENT
  Sex: Male

DRUGS (2)
  1. MULTIPLE MEDS [Suspect]
  2. TRADJENTA [Suspect]
     Indication: TYPE 2 DIABETES MELLITUS

REACTIONS (5)
  - DRUG INTERACTION [None]
  - NAUSEA [None]
  - DIARRHOEA [None]
  - VOMITING [None]
  - DEHYDRATION [None]
